FAERS Safety Report 17284788 (Version 1)
Quarter: 2020Q1

REPORT INFORMATION
  Report Type: Spontaneous
  Country: CA (occurrence: CA)
  Receive Date: 20200117
  Receipt Date: 20200117
  Transmission Date: 20200409
  Serious: Yes (Other)
  Sender: FDA-Public Use
  Company Number: CA-JACOBUS PHARMACEUTICAL COMPANY, INC.-2079145

PATIENT
  Age: 54 Year
  Sex: Male

DRUGS (12)
  1. MYCOPHENOLATE MOEFTIL [Suspect]
     Active Substance: MYCOPHENOLATE MOFETIL
  2. CEFTRIAXONE. [Concomitant]
     Active Substance: CEFTRIAXONE
  3. MYCOPHENOLATE MOFETIL. [Suspect]
     Active Substance: MYCOPHENOLATE MOFETIL
  4. PHENOXYMETHYLPENICILLIN [Concomitant]
     Active Substance: PENICILLIN V
  5. AMPICILLIN SODIUM. [Concomitant]
     Active Substance: AMPICILLIN SODIUM
  6. TACROLIMUS. [Suspect]
     Active Substance: TACROLIMUS
  7. VANCOMYCIN HYDROCHLORIDE. [Concomitant]
     Active Substance: VANCOMYCIN HYDROCHLORIDE
  8. SIROLIMUS. [Suspect]
     Active Substance: SIROLIMUS
  9. DAPSONE. [Suspect]
     Active Substance: DAPSONE
     Indication: ANTIFUNGAL PROPHYLAXIS
  10. ABIRATERONE ACETATE. [Concomitant]
     Active Substance: ABIRATERONE ACETATE
  11. PREDNISONE. [Suspect]
     Active Substance: PREDNISONE
  12. PENICILLIN V POTASIUM [Concomitant]
     Active Substance: PENICILLIN V POTASSIUM

REACTIONS (7)
  - Brain abscess [None]
  - Nocardiosis [None]
  - Photophobia [None]
  - Pyrexia [None]
  - Pleocytosis [None]
  - Leukocytosis [None]
  - Headache [None]
